FAERS Safety Report 7996735 (Version 2)
Quarter: 2012Q4

REPORT INFORMATION
  Report Type: 
  Country: CA (occurrence: CA)
  Receive Date: 20110617
  Receipt Date: 20121107
  Transmission Date: 20130627
  Serious: Yes (Death)
  Sender: FDA-Public Use
  Company Number: PHMT2005CA00591

PATIENT
  Sex: Male

DRUGS (1)
  1. SANDOSTATIN LAR [Suspect]
     Dosage: 30 mg, QMO
     Dates: start: 20050525, end: 20051013

REACTIONS (6)
  - Myocardial infarction [Fatal]
  - Hypertension [Unknown]
  - Acne [Unknown]
  - Flushing [Unknown]
  - Disturbance in attention [Unknown]
  - Thirst [Unknown]
